FAERS Safety Report 17032400 (Version 2)
Quarter: 2019Q4

REPORT INFORMATION
  Report Type: Report from Study
  Country: JP (occurrence: JP)
  Receive Date: 20191114
  Receipt Date: 20191213
  Transmission Date: 20200122
  Serious: Yes (Other)
  Sender: FDA-Public Use
  Company Number: JP-ASTRAZENECA-2019SE93957

PATIENT
  Age: 53 Year
  Sex: Male
  Weight: 73 kg

DRUGS (4)
  1. IMFINZI [Suspect]
     Active Substance: DURVALUMAB
     Indication: NON-SMALL CELL LUNG CANCER
     Route: 041
     Dates: start: 20190507
  2. NEXIUM [Concomitant]
     Active Substance: ESOMEPRAZOLE MAGNESIUM
     Route: 048
     Dates: start: 20190613
  3. LOXOPROFEN [Concomitant]
     Active Substance: LOXOPROFEN
     Dates: start: 20190613
  4. ZYLORIC [Concomitant]
     Active Substance: ALLOPURINOL
     Dates: start: 20190618

REACTIONS (2)
  - Radiation pneumonitis [Recovering/Resolving]
  - Gout [Unknown]

NARRATIVE: CASE EVENT DATE: 20190716
